FAERS Safety Report 25413342 (Version 1)
Quarter: 2025Q2

REPORT INFORMATION
  Report Type: Spontaneous
  Country: US (occurrence: None)
  Receive Date: 20250609
  Receipt Date: 20250609
  Transmission Date: 20250716
  Serious: Yes (Other)
  Sender: FDA-CTU
  Company Number: None

PATIENT
  Age: 66 Year
  Sex: Female

DRUGS (11)
  1. MYCOPHENOLIC ACID [Suspect]
     Active Substance: MYCOPHENOLIC ACID
     Indication: Immunosuppression
     Dosage: FREQUENCY : TWICE A DAY;?
     Route: 048
     Dates: start: 20250101, end: 20250328
  2. ALENDRONATE [Concomitant]
     Active Substance: ALENDRONATE SODIUM
  3. ASPIRIN [Concomitant]
     Active Substance: ASPIRIN
  4. ATOVAQUONE [Concomitant]
     Active Substance: ATOVAQUONE
  5. ELIQUIS [Concomitant]
     Active Substance: APIXABAN
  6. EZETIMIBE [Concomitant]
     Active Substance: EZETIMIBE
  7. FAMOTIDINE [Concomitant]
     Active Substance: FAMOTIDINE
  8. TACROLIMUS [Concomitant]
     Active Substance: TACROLIMUS
  9. GABAPENTIN [Concomitant]
     Active Substance: GABAPENTIN
  10. LOKELMA [Concomitant]
     Active Substance: SODIUM ZIRCONIUM CYCLOSILICATE
  11. METOPROLOL SUCCINATE [Concomitant]
     Active Substance: METOPROLOL SUCCINATE

REACTIONS (2)
  - Bladder cancer [None]
  - Therapy cessation [None]

NARRATIVE: CASE EVENT DATE: 20250328
